FAERS Safety Report 21294987 (Version 1)
Quarter: 2022Q3

REPORT INFORMATION
  Report Type: Spontaneous
  Country: CN (occurrence: CN)
  Receive Date: 20220905
  Receipt Date: 20220905
  Transmission Date: 20221026
  Serious: Yes (Other)
  Sender: FDA-Public Use
  Company Number: None

PATIENT
  Age: 64 Year
  Sex: Female
  Weight: 54 kg

DRUGS (4)
  1. CYCLOPHOSPHAMIDE [Suspect]
     Active Substance: CYCLOPHOSPHAMIDE
     Indication: Breast cancer female
     Dosage: 0.8 G, QD, INJECTION (DILUTED WITH 0.9% SODIUM CHLORIDE INJECTION 100 ML)
     Route: 041
     Dates: start: 20220806, end: 20220806
  2. SODIUM CHLORIDE [Suspect]
     Active Substance: SODIUM CHLORIDE
     Indication: Medication dilution
     Dosage: 100 ML, QD, INJECTION (DILUTED IN CYCLOPHOSPHAMIDE 0.8 G)
     Route: 041
  3. DEXTROSE MONOHYDRATE [Suspect]
     Active Substance: DEXTROSE MONOHYDRATE
     Indication: Medication dilution
     Dosage: 100 ML, QD, INJECTION (DILUTED IN EPIRUBICIN HYDROCHLORIDE 10 MG)
     Route: 041
  4. EPIRUBICIN HYDROCHLORIDE [Suspect]
     Active Substance: EPIRUBICIN HYDROCHLORIDE
     Indication: Breast cancer female
     Dosage: 10 MG, QD, (DILUTED WITH 5% GLUCOSE INJECTION 100 ML)
     Route: 041
     Dates: start: 20220806, end: 20220806

REACTIONS (1)
  - Myelosuppression [Recovering/Resolving]

NARRATIVE: CASE EVENT DATE: 20220819
